FAERS Safety Report 11741473 (Version 2)
Quarter: 2016Q1

REPORT INFORMATION
  Report Type: Spontaneous
  Country: US (occurrence: US)
  Receive Date: 20151116
  Receipt Date: 20160328
  Transmission Date: 20160525
  Serious: No
  Sender: FDA-Public Use
  Company Number: US-009507513-1511USA006306

PATIENT
  Sex: Male

DRUGS (1)
  1. BELSOMRA [Suspect]
     Active Substance: SUVOREXANT
     Dosage: 15 MG, UNK
     Route: 048
     Dates: end: 20151103

REACTIONS (4)
  - Sleep attacks [Recovering/Resolving]
  - Sleep terror [Unknown]
  - Abnormal sleep-related event [Unknown]
  - Weight increased [Unknown]
